FAERS Safety Report 8328467-7 (Version None)
Quarter: 2012Q2

REPORT INFORMATION
  Report Type: 
  Country: None (occurrence: None)
  Receive Date: 20120502
  Receipt Date: 20120502
  Transmission Date: 20120825
  Serious: Yes (Life-Threatening, Hospitalization)
  Sender: FDA-Public Use
  Company Number: None

PATIENT
  Sex: Male
  Weight: 86.6 kg

DRUGS (20)
  1. AMLODIPINE [Concomitant]
  2. FENTANYL-100 [Concomitant]
  3. MIDAZOLAM [Concomitant]
  4. BIVALIRUDIN [Suspect]
     Indication: CATHETERISATION CARDIAC
     Dosage: |DOSAGETEXT: 67.5MG/KG||STRENGTH: 250MG/50ML||FREQ: ONCE||ROUTE: INTRAVENOUS BOLUS|
     Route: 040
     Dates: start: 20120427, end: 20120427
  5. BIVALIRUDIN [Suspect]
     Indication: PERCUTANEOUS CORONARY INTERVENTION
     Dosage: |DOSAGETEXT: 67.5MG/KG||STRENGTH: 250MG/50ML||FREQ: ONCE||ROUTE: INTRAVENOUS BOLUS|
     Route: 040
     Dates: start: 20120427, end: 20120427
  6. NITROGLYERCIN [Concomitant]
     Route: 060
  7. LIDOCAINE [Concomitant]
     Route: 023
  8. HYDRALAZINE HCL [Concomitant]
  9. ALBUMIN (HUMAN) [Concomitant]
  10. CLOPIDOGREL [Concomitant]
     Route: 048
  11. HYDROCODONE BITARTRATE AND ACETAMINOPHEN [Concomitant]
     Route: 048
  12. ACETAMINOPHEN [Concomitant]
  13. ASPIRIN [Concomitant]
  14. VITAMIN D [Concomitant]
  15. METOPROLOL TARTRATE [Concomitant]
  16. TIOTROPIUM [Concomitant]
  17. HEPARIN [Concomitant]
  18. ROSUVASTATIN [Concomitant]
  19. ISOSORBIDE MONONITRATE [Concomitant]
  20. PREDNISONE [Concomitant]

REACTIONS (1)
  - CIRCULATORY COLLAPSE [None]
